FAERS Safety Report 21206373 (Version 2)
Quarter: 2022Q3

REPORT INFORMATION
  Report Type: Report from Study
  Country: CN (occurrence: CN)
  Receive Date: 20220812
  Receipt Date: 20220907
  Transmission Date: 20221027
  Serious: Yes (Death)
  Sender: FDA-Public Use
  Company Number: CN-PFIZER INC-PV202200040284

PATIENT
  Age: 63 Year
  Sex: Female
  Weight: 47 kg

DRUGS (4)
  1. PACLITAXEL [Suspect]
     Active Substance: PACLITAXEL
     Indication: Ovarian cancer
     Dosage: 129 MG, SINGLE
     Route: 041
     Dates: start: 20220322, end: 20220322
  2. PACLITAXEL [Suspect]
     Active Substance: PACLITAXEL
     Dosage: 129 MG, SINGLE
     Route: 041
     Dates: start: 20220329, end: 20220329
  3. AFURESERTIB [Suspect]
     Active Substance: AFURESERTIB
     Indication: Ovarian cancer
     Dosage: 125 MG, 1X/DAY (QD), TABLET
     Route: 048
     Dates: start: 20220322, end: 20220406
  4. AFURESERTIB [Suspect]
     Active Substance: AFURESERTIB
     Dosage: 125 MG, 1X/DAY (QD), TABLET
     Route: 048
     Dates: start: 20220411, end: 20220418

REACTIONS (2)
  - Respiratory failure [Fatal]
  - Circulatory collapse [Fatal]

NARRATIVE: CASE EVENT DATE: 20220621
